FAERS Safety Report 9333869 (Version 1)
Quarter: 2013Q2

REPORT INFORMATION
  Report Type: Spontaneous
  Country: US (occurrence: US)
  Receive Date: 20130606
  Receipt Date: 20130606
  Transmission Date: 20140414
  Serious: No
  Sender: FDA-Public Use
  Company Number: US-AMGEN-USASP2013007815

PATIENT
  Sex: Female

DRUGS (8)
  1. PROLIA [Suspect]
     Indication: OSTEOPOROSIS POSTMENOPAUSAL
     Dosage: UNK
     Dates: start: 20120122
  2. KLONOPIN [Concomitant]
     Dosage: 1 MG, UNK
  3. TRAMADOL [Concomitant]
     Dosage: 50 MG, UNK
  4. VITAMIN D3 [Concomitant]
     Dosage: 10000 UNIT, 2 TIMES/WK
  5. METANX [Concomitant]
     Dosage: UNK UNK, QD
  6. CO-ENZYME Q10 [Concomitant]
     Dosage: UNK UNK, QID
  7. LIPITOR [Concomitant]
     Dosage: 10 MG, UNK
  8. PREVACID [Concomitant]

REACTIONS (3)
  - Nodule [Unknown]
  - Vascular injury [Unknown]
  - Rash [Unknown]
